FAERS Safety Report 4536714-2 (Version None)
Quarter: 2004Q4

REPORT INFORMATION
  Report Type: 
  Country: None (occurrence: None)
  Receive Date: 20041222
  Receipt Date: 20041222
  Transmission Date: 20050328
  Serious: Yes (Hospitalization)
  Sender: FDA-Public Use
  Company Number: None

PATIENT
  Age: 66 Year
  Sex: Male
  Weight: 72.5755 kg

DRUGS (9)
  1. WARFARIN [Suspect]
     Indication: ANTICOAGULANT THERAPY
     Dosage: 2 MG ALT 3 MG DAILY/CHRONIC
  2. ASPIRIN [Suspect]
     Indication: ANTIPLATELET THERAPY
     Dosage: 81 MG DAILY
  3. OMEPRAZOLE [Concomitant]
  4. ASPIRIN [Concomitant]
  5. PHOSLO [Concomitant]
  6. LASIX [Concomitant]
  7. WARFARIN [Concomitant]
  8. NEPH FLEX [Concomitant]
  9. ADVAIR DISKUS 100/50 [Concomitant]

REACTIONS (7)
  - ARTHRITIS [None]
  - ASTHENIA [None]
  - DYSPNOEA [None]
  - EROSIVE DUODENITIS [None]
  - HAEMOGLOBIN DECREASED [None]
  - INTERNATIONAL NORMALISED RATIO INCREASED [None]
  - UPPER GASTROINTESTINAL HAEMORRHAGE [None]
